FAERS Safety Report 16933099 (Version 1)
Quarter: 2019Q4

REPORT INFORMATION
  Report Type: Spontaneous
  Country: NL (occurrence: NL)
  Receive Date: 20191018
  Receipt Date: 20191018
  Transmission Date: 20200122
  Serious: Yes (Death, Other)
  Sender: FDA-Public Use
  Company Number: NL-AUROBINDO-AUR-APL-2019-067325

PATIENT
  Age: 61 Year
  Sex: Male
  Weight: 80 kg

DRUGS (2)
  1. OLANZAPINE 20 MG FILM COATED TABLETS [Suspect]
     Active Substance: OLANZAPINE
     Indication: SCHIZOPHRENIA
  2. OLANZAPINE 20 MG FILM COATED TABLETS [Suspect]
     Active Substance: OLANZAPINE
     Indication: AFFECTIVE DISORDER
     Dosage: 20 MILLIGRAM, ONCE A DAY (1X DAAGS 1 TABLET)
     Route: 048
     Dates: start: 2015, end: 2019

REACTIONS (7)
  - Completed suicide [Fatal]
  - Anxiety [Unknown]
  - Insomnia [Unknown]
  - Restlessness [Unknown]
  - Hallucination [Unknown]
  - Feeling abnormal [Unknown]
  - Therapeutic response unexpected [Unknown]

NARRATIVE: CASE EVENT DATE: 2019
